FAERS Safety Report 11915461 (Version 1)
Quarter: 2016Q1

REPORT INFORMATION
  Report Type: Spontaneous
  Country: US (occurrence: None)
  Receive Date: 20160113
  Receipt Date: 20160113
  Transmission Date: 20160526
  Serious: Yes (Life-Threatening, Hospitalization)
  Sender: FDA-Public Use
  Company Number: None

PATIENT
  Age: 55 Year
  Sex: Female

DRUGS (3)
  1. PIOGLITAZONE. [Concomitant]
     Active Substance: PIOGLITAZONE
  2. LISINOPRIL. [Concomitant]
     Active Substance: LISINOPRIL
  3. LANTUS SOLOSTAR [Suspect]
     Active Substance: INSULIN GLARGINE
     Indication: DIABETES MELLITUS
     Route: 058
     Dates: start: 20151215, end: 20160111

REACTIONS (1)
  - Shock hypoglycaemic [None]

NARRATIVE: CASE EVENT DATE: 20160111
